FAERS Safety Report 7296626-0 (Version None)
Quarter: 2011Q1

REPORT INFORMATION
  Report Type: 
  Country: None (occurrence: None)
  Receive Date: 20110216
  Receipt Date: 20110210
  Transmission Date: 20110831
  Serious: Yes (Life-Threatening, Hospitalization)
  Sender: FDA-Public Use
  Company Number: PHHY2011FR11203

PATIENT
  Age: 40 Year
  Sex: Male

DRUGS (3)
  1. AMLODIPINE BESYLATE [Suspect]
     Dosage: UNK
  2. RASILEZ [Suspect]
     Dosage: 300 MG, UNK
     Route: 048
  3. RASILEZ [Suspect]
     Dosage: INTAKE OF THE ENTIRE PACK OF 300 MG

REACTIONS (1)
  - TOXICITY TO VARIOUS AGENTS [None]
